FAERS Safety Report 6860145-3 (Version None)
Quarter: 2010Q3

REPORT INFORMATION
  Report Type: 
  Country: None (occurrence: None)
  Receive Date: 20100720
  Receipt Date: 20100713
  Transmission Date: 20110219
  Serious: Yes (Hospitalization)
  Sender: FDA-Public Use
  Company Number: US-WYE-H14295110

PATIENT
  Sex: Female
  Weight: 69.92 kg

DRUGS (3)
  1. PRISTIQ [Suspect]
     Indication: DEPRESSION
     Dates: start: 20091101, end: 20100321
  2. LEVOXYL [Concomitant]
     Dosage: UNKNOWN
  3. OXYBUTYNIN CHLORIDE [Concomitant]

REACTIONS (8)
  - DRUG HYPERSENSITIVITY [None]
  - DRUG WITHDRAWAL SYNDROME [None]
  - EOSINOPHILIC PNEUMONIA [None]
  - OROPHARYNGEAL PAIN [None]
  - PARAESTHESIA [None]
  - PLEURISY [None]
  - RASH PRURITIC [None]
  - TINNITUS [None]
